FAERS Safety Report 10806327 (Version 1)
Quarter: 2015Q1

REPORT INFORMATION
  Report Type: Report from Study
  Country: US (occurrence: US)
  Receive Date: 20150217
  Receipt Date: 20150217
  Transmission Date: 20150721
  Serious: No
  Sender: FDA-Public Use
  Company Number: US-ABBVIE-14K-163-1259715-00

PATIENT
  Age: 28 Year
  Sex: Male

DRUGS (3)
  1. MAXIMUM STRENGTH PRESCRIPTION SALVE [Concomitant]
     Indication: PSORIASIS
  2. HUMIRA [Suspect]
     Active Substance: ADALIMUMAB
     Indication: PSORIASIS
     Dates: start: 20130405
  3. UNKNOWN TOPICAL SOLUTION [Concomitant]
     Indication: PSORIASIS
     Dosage: TO THE SCALP EVERY COUPLE OF DAYS
     Route: 061

REACTIONS (2)
  - Skin injury [Recovering/Resolving]
  - Haemorrhage [Recovering/Resolving]

NARRATIVE: CASE EVENT DATE: 20140708
